FAERS Safety Report 5164490-1 (Version None)
Quarter: 2006Q4

REPORT INFORMATION
  Report Type: 
  Country: None (occurrence: None)
  Receive Date: 20061124
  Receipt Date: 20061109
  Transmission Date: 20070319
  Serious: Yes (Death)
  Sender: FDA-Public Use
  Company Number: 2006141011

PATIENT
  Age: 13 Year
  Sex: Female

DRUGS (4)
  1. PARACETAMOL / PSEUDOEPHEDRINE [Suspect]
     Indication: UPPER RESPIRATORY TRACT INFECTION
     Dosage: ORAL
     Route: 048
  2. ACETAMINOPHEN [Suspect]
     Indication: UPPER RESPIRATORY TRACT INFECTION
     Dosage: ORAL
     Route: 048
  3. MYCOPHENOLATE MOFETIL [Concomitant]
  4. TACROLIMUS               (TRACROLIMUS) [Concomitant]

REACTIONS (2)
  - HEPATIC ENCEPHALOPATHY [None]
  - RENAL IMPAIRMENT [None]
